FAERS Safety Report 8849879 (Version 1)
Quarter: 2012Q4

REPORT INFORMATION
  Report Type: Report from Study
  Country: AU (occurrence: AU)
  Receive Date: 20121019
  Receipt Date: 20121019
  Transmission Date: 20130627
  Serious: Yes (Other)
  Sender: FDA-Public Use
  Company Number: AU-ROCHE-1146602

PATIENT
  Age: 51 Year
  Sex: Female

DRUGS (4)
  1. TOCILIZUMAB [Suspect]
     Indication: RHEUMATOID ARTHRITIS
     Route: 042
     Dates: start: 20110215
  2. METHOTREXATE [Concomitant]
     Indication: RHEUMATOID ARTHRITIS
     Route: 048
  3. PREDNISONE [Concomitant]
     Indication: RHEUMATOID ARTHRITIS
     Route: 048
  4. VOLTAREN [Concomitant]
     Indication: RHEUMATOID ARTHRITIS
     Route: 065

REACTIONS (2)
  - Tooth infection [Recovered/Resolved]
  - Rheumatoid arthritis [Recovered/Resolved]
